FAERS Safety Report 7682889-6 (Version None)
Quarter: 2011Q3

REPORT INFORMATION
  Report Type: 
  Country: None (occurrence: None)
  Receive Date: 20110812
  Receipt Date: 20110812
  Transmission Date: 20111222
  Serious: Yes (Hospitalization, Disabling)
  Sender: FDA-Public Use
  Company Number: None

PATIENT
  Sex: Male
  Weight: 72.5755 kg

DRUGS (1)
  1. SIMAVASTATIN [Suspect]
     Indication: DRUG THERAPY
     Dosage: 1 P DAY Q P DAY

REACTIONS (1)
  - MUSCLE SPASMS [None]
